FAERS Safety Report 4300276-5 (Version None)
Quarter: 2004Q1

REPORT INFORMATION
  Report Type: 
  Country: None (occurrence: None)
  Receive Date: 20040220
  Receipt Date: 20010731
  Transmission Date: 20041129
  Serious: Yes (Disabling)
  Sender: FDA-Public Use
  Company Number: WAES 01080883

PATIENT
  Age: 39 Year
  Sex: Male
  Weight: 91 kg

DRUGS (11)
  1. LIPITOR [Concomitant]
  2. CELEBREX [Concomitant]
     Indication: NECK PAIN
     Route: 048
     Dates: start: 20010201, end: 20010501
  3. CELEBREX [Concomitant]
     Indication: OSTEOARTHRITIS
     Route: 048
     Dates: start: 20010201, end: 20010501
  4. PREVACID [Concomitant]
  5. SINGULAIR [Concomitant]
     Indication: BRONCHOSPASM
     Route: 048
     Dates: start: 20010101, end: 20010501
  6. SINGULAIR [Concomitant]
     Route: 048
     Dates: start: 20010101
  7. VIOXX [Suspect]
     Indication: BACK PAIN
     Route: 048
     Dates: start: 20010801, end: 20010801
  8. VIOXX [Suspect]
     Route: 048
     Dates: start: 20010101, end: 20010501
  9. VIOXX [Suspect]
     Indication: NECK PAIN
     Route: 048
     Dates: start: 20010801, end: 20010801
  10. VIOXX [Suspect]
     Route: 048
     Dates: start: 20010101, end: 20010501
  11. ZOCOR [Concomitant]

REACTIONS (6)
  - ASTHENIA [None]
  - FATIGUE [None]
  - HYPERSENSITIVITY [None]
  - MACULAR OEDEMA [None]
  - VISION BLURRED [None]
  - VISUAL ACUITY REDUCED [None]
